FAERS Safety Report 14673197 (Version 2)
Quarter: 2018Q2

REPORT INFORMATION
  Report Type: Report from Study
  Country: US (occurrence: US)
  Receive Date: 20180323
  Receipt Date: 20180416
  Transmission Date: 20180711
  Serious: Yes (Hospitalization)
  Sender: FDA-Public Use
  Company Number: US-GILEAD-2018-0321591

PATIENT
  Age: 43 Year
  Sex: Female
  Weight: 93.88 kg

DRUGS (45)
  1. PEPCID                             /00305201/ [Concomitant]
     Active Substance: ALUMINUM HYDROXIDE\MAGNESIUM CARBONATE
  2. ACCUNEB [Concomitant]
     Active Substance: ALBUTEROL SULFATE
  3. SUBLIMAZE [Concomitant]
     Active Substance: FENTANYL CITRATE
  4. LANOXIN [Concomitant]
     Active Substance: DIGOXIN
  5. MIRALAX [Concomitant]
     Active Substance: POLYETHYLENE GLYCOL 3350
  6. PROAIR HFA [Concomitant]
     Active Substance: ALBUTEROL SULFATE
  7. NORCO [Concomitant]
     Active Substance: ACETAMINOPHEN\HYDROCODONE BITARTRATE
  8. ROBAXIN [Concomitant]
     Active Substance: METHOCARBAMOL
  9. VERSED [Concomitant]
     Active Substance: MIDAZOLAM HYDROCHLORIDE
  10. PHENERGAN [Concomitant]
     Active Substance: PROMETHAZINE HYDROCHLORIDE
  11. ARTIFICIAL TEARS                   /00445101/ [Concomitant]
  12. PLAQUENIL                          /00072602/ [Concomitant]
     Active Substance: HYDROXYCHLOROQUINE DIPHOSPHATE
  13. ATROVENT [Concomitant]
     Active Substance: IPRATROPIUM BROMIDE
  14. LOVENOX [Concomitant]
     Active Substance: ENOXAPARIN SODIUM
  15. OCEAN SALINE NASAL SPRAY [Concomitant]
     Active Substance: SODIUM CHLORIDE
  16. NEILMED NASADROPS [Concomitant]
  17. COLACE [Concomitant]
     Active Substance: DOCUSATE SODIUM
  18. MAG-OX [Concomitant]
     Active Substance: MAGNESIUM OXIDE
  19. CELLCEPT [Concomitant]
     Active Substance: MYCOPHENOLATE MOFETIL\MYCOPHENOLATE MOFETIL HYDROCHLORIDE
  20. GADAVIST [Concomitant]
     Active Substance: GADOBUTROL
  21. ZOFRAN [Concomitant]
     Active Substance: ONDANSETRON HYDROCHLORIDE
  22. K-DUR [Concomitant]
     Active Substance: POTASSIUM CHLORIDE
  23. CYMBALTA [Concomitant]
     Active Substance: DULOXETINE HYDROCHLORIDE
  24. GLUCAGON. [Concomitant]
     Active Substance: GLUCAGON
  25. ZYRTEC [Concomitant]
     Active Substance: CETIRIZINE HYDROCHLORIDE
  26. NEURONTIN [Concomitant]
     Active Substance: GABAPENTIN
  27. ULTRAM [Concomitant]
     Active Substance: TRAMADOL HYDROCHLORIDE
  28. VELETRI [Concomitant]
     Active Substance: EPOPROSTENOL
  29. DILAUDID [Concomitant]
     Active Substance: HYDROMORPHONE HYDROCHLORIDE
  30. DEXTROSE. [Concomitant]
     Active Substance: DEXTROSE
  31. XYLOCAINE [Concomitant]
     Active Substance: LIDOCAINE HYDROCHLORIDE
  32. FERROUS SULFATE. [Concomitant]
     Active Substance: FERROUS SULFATE
  33. NARCAN [Concomitant]
     Active Substance: NALOXONE HYDROCHLORIDE
  34. ALDACTONE [Concomitant]
     Active Substance: SPIRONOLACTONE
  35. AMLODIPINE [Concomitant]
     Active Substance: AMLODIPINE BESYLATE
  36. PROTONIX                           /00661201/ [Concomitant]
     Active Substance: OMEPRAZOLE
  37. ROZEREM [Concomitant]
     Active Substance: RAMELTEON
  38. HUMALOG [Concomitant]
     Active Substance: INSULIN LISPRO
  39. ROBITUSSIN (GUAIFENESIN) [Concomitant]
     Active Substance: GUAIFENESIN
  40. AMBRISENTAN [Suspect]
     Active Substance: AMBRISENTAN
     Indication: PRODUCT USED FOR UNKNOWN INDICATION
     Dosage: 10 MG, QD
     Route: 048
     Dates: start: 20180206
  41. ADCIRCA [Concomitant]
     Active Substance: TADALAFIL
  42. UPTRAVI [Concomitant]
     Active Substance: SELEXIPAG
  43. IMODIUM [Concomitant]
     Active Substance: LOPERAMIDE HYDROCHLORIDE
  44. SODIUM CHLORIDE. [Concomitant]
     Active Substance: SODIUM CHLORIDE
  45. TYLENOL [Concomitant]
     Active Substance: ACETAMINOPHEN

REACTIONS (7)
  - Neck pain [Not Recovered/Not Resolved]
  - Transplant evaluation [Unknown]
  - Headache [Not Recovered/Not Resolved]
  - Lung disorder [Unknown]
  - Pain in jaw [Not Recovered/Not Resolved]
  - Fungal infection [Unknown]
  - Diarrhoea [Recovering/Resolving]

NARRATIVE: CASE EVENT DATE: 20180301
